FAERS Safety Report 24073085 (Version 1)
Quarter: 2024Q3

REPORT INFORMATION
  Report Type: Spontaneous
  Country: US (occurrence: US)
  Receive Date: 20240710
  Receipt Date: 20240710
  Transmission Date: 20241017
  Serious: Yes (Other)
  Sender: SANOFI AVENTIS
  Company Number: US-SANOFI-02117179

PATIENT
  Age: 80 Year
  Sex: Female

DRUGS (1)
  1. LANTUS SOLOSTAR [Suspect]
     Active Substance: INSULIN GLARGINE
     Indication: Diabetes mellitus
     Dosage: 20-25 UNITS (SLIDING SCALE) HS AND DRUG TREATMENT DURATION:YEARS

REACTIONS (2)
  - Diabetes mellitus inadequate control [Unknown]
  - Device defective [Unknown]
